FAERS Safety Report 16858533 (Version 2)
Quarter: 2019Q4

REPORT INFORMATION
  Report Type: Spontaneous
  Country: US (occurrence: US)
  Receive Date: 20190926
  Receipt Date: 20191018
  Transmission Date: 20200122
  Serious: Yes (Other)
  Sender: FDA-Public Use
  Company Number: US-PFIZER INC-2019410200

PATIENT
  Age: 64 Year
  Sex: Male
  Weight: 94.8 kg

DRUGS (9)
  1. ZARONTIN [Suspect]
     Active Substance: ETHOSUXIMIDE
     Indication: SEIZURE
     Dosage: 500 MG, 2X/DAY (TWO CAPSULES OF 250 MG IN THE MORNING AND NIGHT )
     Route: 048
  2. CARBAMAZEPINE. [Concomitant]
     Active Substance: CARBAMAZEPINE
     Dosage: 1.5 TABLETS IN THE MORNING AND 1.5 AT BEDTIME
     Route: 048
     Dates: start: 201903
  3. KEPPRA [Concomitant]
     Active Substance: LEVETIRACETAM
     Dosage: 250 MG, 1X/DAY [Q AM (EVERY AM)]
  4. CARBAMAZEPINE. [Concomitant]
     Active Substance: CARBAMAZEPINE
     Dosage: 100 MG, 2X/DAY
  5. KEPPRA [Concomitant]
     Active Substance: LEVETIRACETAM
     Indication: SEIZURE
     Dosage: 250 MG, 2X/DAY
  6. CARBAMAZEPINE. [Concomitant]
     Active Substance: CARBAMAZEPINE
     Indication: SEIZURE
     Dosage: 1.5 TABLETS IN THE MORNING AND 1 TABLET AT BEDTIME
     Dates: start: 1975
  7. ZARONTIN [Suspect]
     Active Substance: ETHOSUXIMIDE
     Dosage: 750 MG, 2X/DAY(250 MG THREE BID)
     Route: 048
     Dates: start: 20170327
  8. MONTELUKAST SODIUM. [Concomitant]
     Active Substance: MONTELUKAST SODIUM
     Indication: SEASONAL ALLERGY
     Dosage: 10 MG, DAILY
     Route: 048
  9. ZARONTIN [Suspect]
     Active Substance: ETHOSUXIMIDE
     Indication: GENERALISED TONIC-CLONIC SEIZURE
     Dosage: 1500 MG, DAILY (6 DF A DAY)
     Route: 048
     Dates: start: 1988

REACTIONS (15)
  - Aggression [Recovered/Resolved]
  - Product use in unapproved indication [Unknown]
  - Off label use [Unknown]
  - Mental impairment [Recovered/Resolved]
  - Aura [Recovered/Resolved]
  - Weight decreased [Not Recovered/Not Resolved]
  - Recalled product administered [Unknown]
  - Confusional state [Not Recovered/Not Resolved]
  - Toxicity to various agents [Recovered/Resolved]
  - Dysarthria [Recovered/Resolved]
  - Impaired driving ability [Unknown]
  - Agitation [Recovered/Resolved]
  - Balance disorder [Recovered/Resolved]
  - Memory impairment [Recovered/Resolved]
  - Fatigue [Recovered/Resolved]

NARRATIVE: CASE EVENT DATE: 2019
